FAERS Safety Report 17689666 (Version 1)
Quarter: 2020Q2

REPORT INFORMATION
  Report Type: Spontaneous
  Country: US (occurrence: US)
  Receive Date: 20200421
  Receipt Date: 20200421
  Transmission Date: 20200714
  Serious: Yes (Other)
  Sender: FDA-Public Use
  Company Number: US-ALLERGAN-2012282US

PATIENT
  Sex: Male

DRUGS (1)
  1. OZURDEX [Suspect]
     Active Substance: DEXAMETHASONE
     Indication: DIABETIC RETINOPATHY
     Dosage: 0.7 MG, SINGLE
     Route: 031
     Dates: start: 20200313, end: 20200313

REACTIONS (5)
  - Hypopyon [Recovered/Resolved]
  - Corneal oedema [Recovered/Resolved]
  - Endophthalmitis [Recovered/Resolved]
  - Off label use [Unknown]
  - Blindness [Recovered/Resolved]

NARRATIVE: CASE EVENT DATE: 20200316
